FAERS Safety Report 4358221-2 (Version None)
Quarter: 2004Q2

REPORT INFORMATION
  Report Type: 
  Country: None (occurrence: None)
  Receive Date: 20040511
  Receipt Date: 20040428
  Transmission Date: 20050107
  Serious: Yes (Death, Hospitalization, Other)
  Sender: FDA-Public Use
  Company Number: 2004002754

PATIENT
  Sex: Female

DRUGS (6)
  1. VFEND [Suspect]
     Indication: ASPERGILLOSIS
     Dosage: 400 MG 2 IN 1 D, ORAL
     Route: 048
     Dates: start: 20031203, end: 20031210
  2. VFEND [Suspect]
     Indication: ASPERGILLOSIS
     Dosage: 400 MG 2 IN 1 D, ORAL
     Route: 048
     Dates: start: 20031218, end: 20040105
  3. CASPOFUNGIN ACETATE (CASPOFUNGIN ACETATE) [Suspect]
     Indication: ILL-DEFINED DISORDER
     Dosage: INTRAVENOUS
     Route: 042
     Dates: start: 20031210
  4. ACETAMINOPHEN [Concomitant]
  5. METRONIDAZOLE [Concomitant]
  6. PIP-TAZO (PIPERACILLIN SODIUM, TAZOBACTAM SODIUM) [Concomitant]

REACTIONS (5)
  - ASPERGILLOSIS [None]
  - CHOLESTASIS [None]
  - HEPATIC FAILURE [None]
  - HEPATIC NECROSIS [None]
  - RENAL FAILURE [None]
